FAERS Safety Report 21904321 (Version 1)
Quarter: 2023Q1

REPORT INFORMATION
  Report Type: Spontaneous
  Country: US (occurrence: None)
  Receive Date: 20230124
  Receipt Date: 20230124
  Transmission Date: 20230418
  Serious: Yes (Hospitalization)
  Sender: FDA-Public Use
  Company Number: None

PATIENT
  Sex: Male
  Weight: 78 kg

DRUGS (4)
  1. FLUOROURACIL [Suspect]
     Active Substance: FLUOROURACIL
     Dates: end: 20230112
  2. CAMPTOSAR [Suspect]
     Active Substance: IRINOTECAN HYDROCHLORIDE
     Dates: end: 20230110
  3. LEUCOVORIN CALCIUM [Suspect]
     Active Substance: LEUCOVORIN CALCIUM
     Dates: end: 20230110
  4. ELOXATIN [Concomitant]
     Active Substance: OXALIPLATIN
     Dates: end: 20230110

REACTIONS (10)
  - Cough [None]
  - Palpitations [None]
  - Sepsis [None]
  - Haemoptysis [None]
  - Anaemia [None]
  - Melaena [None]
  - Pneumonitis [None]
  - Pleural effusion [None]
  - Pericardial effusion [None]
  - Nasopharyngitis [None]

NARRATIVE: CASE EVENT DATE: 20230115
